FAERS Safety Report 18254761 (Version 4)
Quarter: 2020Q4

REPORT INFORMATION
  Report Type: Report from Study
  Country: FR (occurrence: FR)
  Receive Date: 20200910
  Receipt Date: 20201020
  Transmission Date: 20210113
  Serious: Yes (Death, Life-Threatening, Hospitalization, Other)
  Sender: FDA-Public Use
  Company Number: FR-BRISTOL-MYERS SQUIBB COMPANY-BMS-2020-072621

PATIENT
  Age: 78 Year
  Sex: Male

DRUGS (1)
  1. NIVOLUMAB [Suspect]
     Active Substance: NIVOLUMAB
     Indication: NEUROENDOCRINE CARCINOMA
     Dosage: 3 MG/KG, 2 MONTH
     Route: 042
     Dates: start: 20200819, end: 20200819

REACTIONS (3)
  - Spinal cord compression [Not Recovered/Not Resolved]
  - Meningitis [Fatal]
  - Encephalitis [Fatal]

NARRATIVE: CASE EVENT DATE: 20200902
